FAERS Safety Report 13565912 (Version 1)
Quarter: 2017Q2

REPORT INFORMATION
  Report Type: Spontaneous
  Country: CH (occurrence: CH)
  Receive Date: 20170520
  Receipt Date: 20170520
  Transmission Date: 20170830
  Serious: Yes (Hospitalization, Other)
  Sender: FDA-Public Use
  Company Number: CH-AMGEN-CHESP2017055898

PATIENT
  Age: 43 Year
  Sex: Female
  Weight: 60 kg

DRUGS (9)
  1. REVLIMID [Concomitant]
     Active Substance: LENALIDOMIDE
     Indication: PLASMA CELL MYELOMA
     Dosage: 25 MG, T1 21/D28D
     Dates: start: 20170307
  2. ASPIRIN CARDIO [Concomitant]
     Active Substance: ASPIRIN
     Dosage: UNK UNK, QD
     Route: 048
  3. BACTRIM [Concomitant]
     Active Substance: SULFAMETHOXAZOLE\TRIMETHOPRIM
     Dosage: QD, AT MORNING ON MONDAY, WEDNESDAY AND FRIDAY
     Route: 048
     Dates: start: 2017
  4. DEXAMETHASONE. [Concomitant]
     Active Substance: DEXAMETHASONE
     Indication: PLASMA CELL MYELOMA
     Dosage: UNK
     Dates: start: 20170307
  5. CALCIMAGON D3 [Concomitant]
     Active Substance: CALCIUM\CHOLECALCIFEROL
     Dosage: QD, AT MORNING
     Route: 048
     Dates: start: 2017
  6. FOLIC ACID. [Concomitant]
     Active Substance: FOLIC ACID
     Dosage: QD, AT MORNING
     Route: 048
     Dates: start: 2017
  7. KYPROLIS [Suspect]
     Active Substance: CARFILZOMIB
     Indication: PLASMA CELL MYELOMA
     Dosage: 27 MG/M2, UNK
     Route: 042
     Dates: start: 20170307
  8. PANTOZOL [Concomitant]
     Active Substance: PANTOPRAZOLE SODIUM
     Dosage: QD, AT MORNING
     Route: 048
     Dates: start: 2017
  9. VALTREX [Concomitant]
     Active Substance: VALACYCLOVIR HYDROCHLORIDE
     Dosage: BID AT MORNING AND EVENING
     Route: 048
     Dates: start: 2017

REACTIONS (4)
  - Systemic inflammatory response syndrome [Unknown]
  - Pancytopenia [Recovered/Resolved]
  - Renal failure [Recovered/Resolved]
  - Hypertension [Unknown]

NARRATIVE: CASE EVENT DATE: 20170309
